FAERS Safety Report 13497379 (Version 1)
Quarter: 2017Q2

REPORT INFORMATION
  Report Type: Spontaneous
  Country: US (occurrence: US)
  Receive Date: 20170428
  Receipt Date: 20170428
  Transmission Date: 20170830
  Serious: No
  Sender: FDA-Public Use
  Company Number: None

PATIENT
  Age: 64 Year
  Sex: Female

DRUGS (1)
  1. IBRANCE [Suspect]
     Active Substance: PALBOCICLIB

REACTIONS (5)
  - Rash [None]
  - Pneumonia [None]
  - Pain [None]
  - Gait disturbance [None]
  - Herpes zoster [None]

NARRATIVE: CASE EVENT DATE: 20170428
